FAERS Safety Report 21399579 (Version 1)
Quarter: 2022Q4

REPORT INFORMATION
  Report Type: Spontaneous
  Country: DE (occurrence: DE)
  Receive Date: 20221001
  Receipt Date: 20221001
  Transmission Date: 20230112
  Serious: Yes (Hospitalization, Other)
  Sender: FDA-Public Use
  Company Number: DE-ADRED-07684-01

PATIENT
  Age: 80 Year
  Sex: Female
  Weight: 74 kg

DRUGS (4)
  1. IBUPROFEN [Suspect]
     Active Substance: IBUPROFEN
     Indication: Product used for unknown indication
     Dosage: 600 MG, IF NEEDED
     Route: 065
  2. PANTOPRAZOLE SODIUM [Concomitant]
     Active Substance: PANTOPRAZOLE SODIUM
     Indication: Product used for unknown indication
     Dosage: 40 MG, WHEN TAKING PAINKILLERS
  3. EUTHYROX [Concomitant]
     Active Substance: LEVOTHYROXINE SODIUM
     Indication: Product used for unknown indication
     Dosage: 75 MICROGRAM DAILY; 75 UG, 1-0-0-0, STRENGTH :75 MCG
  4. CANDESARTAN CILEXETIL [Concomitant]
     Active Substance: CANDESARTAN CILEXETIL
     Indication: Product used for unknown indication
     Dosage: 1 DOSAGE FORMS DAILY; 32 MG, 0.5-0-0.5-0, STRENGTH : 32MG

REACTIONS (4)
  - Diverticulitis [Unknown]
  - Abdominal pain [Unknown]
  - Constipation [Unknown]
  - Flatulence [Unknown]
